FAERS Safety Report 5517622-7 (Version None)
Quarter: 2007Q4

REPORT INFORMATION
  Report Type: 
  Country: None (occurrence: None)
  Receive Date: 20071114
  Receipt Date: 20071102
  Transmission Date: 20080405
  Serious: Yes (Other)
  Sender: FDA-Public Use
  Company Number: US-PFIZER INC-2007093655

PATIENT
  Sex: Female
  Weight: 70.3 kg

DRUGS (14)
  1. CHANTIX [Suspect]
     Indication: SMOKING CESSATION THERAPY
  2. XANAX [Concomitant]
  3. SKELAXIN [Concomitant]
  4. OXYCODONE HCL [Concomitant]
  5. TRILEPTAL [Concomitant]
  6. FOLIC ACID [Concomitant]
  7. NEXIUM [Concomitant]
  8. VITAMINS [Concomitant]
  9. CALCIUM [Concomitant]
  10. ASCORBIC ACID [Concomitant]
  11. ECHINACEA [Concomitant]
  12. WELCHOL [Concomitant]
  13. SPIRIVA [Concomitant]
  14. ALBUTEROL [Concomitant]

REACTIONS (3)
  - ABASIA [None]
  - MUSCLE SPASMS [None]
  - UNEVALUABLE EVENT [None]
